FAERS Safety Report 9768379 (Version 1)
Quarter: 2013Q4

REPORT INFORMATION
  Report Type: Spontaneous
  Country: JP (occurrence: JP)
  Receive Date: 20131217
  Receipt Date: 20131217
  Transmission Date: 20140711
  Serious: Yes (Other)
  Sender: FDA-Public Use
  Company Number: PHHY2013JP146165

PATIENT
  Age: 3 Year
  Sex: Female

DRUGS (3)
  1. CARBOPLATIN SANDOZ [Suspect]
     Indication: HEPATOBLASTOMA
     Dosage: 500 MG/M2, UNK
     Route: 042
  2. CISPLATIN [Suspect]
     Indication: HEPATOBLASTOMA
     Dosage: 80 MG/M2, UNK
     Route: 042
  3. DOXORUBICIN [Suspect]
     Indication: HEPATOBLASTOMA
     Dosage: 30 MG/M2, UNK
     Route: 042

REACTIONS (3)
  - Hearing impaired [Unknown]
  - Febrile neutropenia [Unknown]
  - Haematotoxicity [Unknown]
